FAERS Safety Report 8010353-3 (Version None)
Quarter: 2011Q4

REPORT INFORMATION
  Report Type: 
  Country: None (occurrence: None)
  Receive Date: 20111228
  Receipt Date: 20111220
  Transmission Date: 20120403
  Serious: Yes (Other)
  Sender: FDA-Public Use
  Company Number: FR-JNJFOC-20111210603

PATIENT
  Sex: Female

DRUGS (5)
  1. MIOREL [Suspect]
     Indication: BACK PAIN
     Route: 048
     Dates: start: 20111031, end: 20111103
  2. ACETAMINOPHEN [Concomitant]
     Indication: PRODUCT USED FOR UNKNOWN INDICATION
     Route: 065
     Dates: start: 20111102, end: 20111103
  3. VOLTAREN [Suspect]
     Indication: BACK PAIN
     Route: 048
     Dates: start: 20111031, end: 20111102
  4. MYOLASTAN [Suspect]
     Indication: BACK PAIN
     Route: 048
     Dates: start: 20111031, end: 20111103
  5. ACETAMINOPHEN AND TRAMADOL HCL [Suspect]
     Indication: BACK PAIN
     Route: 048
     Dates: start: 20111031, end: 20111102

REACTIONS (1)
  - HEPATITIS CHOLESTATIC [None]
